FAERS Safety Report 8856516 (Version 1)
Quarter: 2012Q4

REPORT INFORMATION
  Report Type: Spontaneous
  Country: GB (occurrence: None)
  Receive Date: 20121018
  Receipt Date: 20121018
  Transmission Date: 20130627
  Serious: Yes (Other)
  Sender: FDA-Public Use
  Company Number: AUR-APL-2012-04320

PATIENT
  Age: 74 Year
  Sex: Female

DRUGS (2)
  1. METFORMIN (METFORMIN) [Suspect]
     Indication: DIABETES
     Dosage: 1300 mg  daily (twice: 500 mg mane, 800 mg nocte), Unknown
  2. LANTUS [Suspect]
     Indication: DIABETES
     Route: 058

REACTIONS (3)
  - Hypoglycaemia [None]
  - Emotional disorder [None]
  - Visual impairment [None]
